FAERS Safety Report 16064016 (Version 1)
Quarter: 2019Q1

REPORT INFORMATION
  Report Type: Spontaneous
  Country: DK (occurrence: DK)
  Receive Date: 20190312
  Receipt Date: 20190312
  Transmission Date: 20190418
  Serious: Yes (Other)
  Sender: FDA-Public Use
  Company Number: PHHY2019DK051587

PATIENT
  Age: 38 Year
  Sex: Female

DRUGS (3)
  1. QUETIAPIN ACCORD [Suspect]
     Active Substance: QUETIAPINE
     Indication: PSYCHOTIC DISORDER
     Dosage: UNK (START 25 MG, TRAPPES OP TIL 200 MG FRA APR2015)
     Route: 048
     Dates: start: 20150211, end: 20160302
  2. OXAPAX [Concomitant]
     Active Substance: OXAZEPAM
     Indication: SEDATION
     Dosage: 7.5 MG, UNK
     Route: 048
     Dates: start: 20150810, end: 20160302
  3. QUETIAPINE SANDOZ [Suspect]
     Active Substance: QUETIAPINE
     Indication: PSYCHOTIC DISORDER
     Dosage: UNK (DOSIS: START 25 MG, TRAPPES OP TIL 200 MG FRA APR2015)
     Route: 048
     Dates: start: 20150211, end: 20160302

REACTIONS (8)
  - Memory impairment [Recovered/Resolved]
  - Alopecia [Not Recovered/Not Resolved]
  - Depressed mood [Unknown]
  - Disturbance in attention [Recovered/Resolved]
  - Dysphonia [Not Recovered/Not Resolved]
  - Fatigue [Not Recovered/Not Resolved]
  - Menorrhagia [Not Recovered/Not Resolved]
  - Myxoedema [Not Recovered/Not Resolved]

NARRATIVE: CASE EVENT DATE: 201710
